FAERS Safety Report 14804169 (Version 1)
Quarter: 2018Q2

REPORT INFORMATION
  Report Type: Spontaneous
  Country: US (occurrence: US)
  Receive Date: 20180425
  Receipt Date: 20180425
  Transmission Date: 20180711
  Serious: No
  Sender: FDA-Public Use
  Company Number: US-TEVA-798654ACC

PATIENT
  Age: 62 Year
  Sex: Female
  Weight: 76.73 kg

DRUGS (3)
  1. REVATIO [Suspect]
     Active Substance: SILDENAFIL CITRATE
     Indication: PULMONARY HYPERTENSION
     Dosage: 60 MILLIGRAM DAILY;
     Route: 048
     Dates: start: 2010
  2. ZORVOLEX [Suspect]
     Active Substance: DICLOFENAC
     Indication: COCCYDYNIA
     Dosage: 2-3 TIMES PER DAY AS NEEDED
     Route: 048
     Dates: start: 20170716, end: 20170718
  3. CEFALEXIN [Suspect]
     Active Substance: CEPHALEXIN
     Indication: SKIN ULCER
     Dosage: 1000 MILLIGRAM DAILY;
     Route: 048
     Dates: start: 20170716, end: 20170717

REACTIONS (1)
  - Hypersensitivity [Recovering/Resolving]

NARRATIVE: CASE EVENT DATE: 20170716
